FAERS Safety Report 25674932 (Version 1)
Quarter: 2025Q3

REPORT INFORMATION
  Report Type: Spontaneous
  Country: JP (occurrence: JP)
  Receive Date: 20250813
  Receipt Date: 20250813
  Transmission Date: 20251021
  Serious: Yes (Death, Hospitalization)
  Sender: ROCHE
  Company Number: JP-CHUGAI-2025019402

PATIENT
  Age: 78 Year
  Sex: Male

DRUGS (3)
  1. TECENTRIQ [Suspect]
     Active Substance: ATEZOLIZUMAB
     Indication: Small cell lung cancer
     Route: 042
     Dates: start: 20250527, end: 20250527
  2. CARBOPLATIN [Suspect]
     Active Substance: CARBOPLATIN
     Indication: Small cell lung cancer
     Route: 042
     Dates: start: 20250527
  3. ETOPOSIDE [Suspect]
     Active Substance: ETOPOSIDE
     Indication: Small cell lung cancer
     Route: 042
     Dates: start: 20250527

REACTIONS (3)
  - Febrile neutropenia [Not Recovered/Not Resolved]
  - Respiratory failure [Fatal]
  - Disease progression [Fatal]

NARRATIVE: CASE EVENT DATE: 20250604
